FAERS Safety Report 5756156-1 (Version None)
Quarter: 2008Q2

REPORT INFORMATION
  Report Type: 
  Country: None (occurrence: None)
  Receive Date: 20080602
  Receipt Date: 20080505
  Transmission Date: 20081010
  Serious: Yes (Hospitalization)
  Sender: FDA-Public Use
  Company Number: IT-MERCK-0805ITA00003

PATIENT
  Age: 73 Year
  Sex: Male

DRUGS (3)
  1. ZOCOR [Suspect]
     Indication: HYPERCHOLESTEROLAEMIA
     Route: 048
  2. KETOCONAZOLE [Suspect]
     Indication: FUNGAL SKIN INFECTION
     Route: 065
  3. KETOCONAZOLE [Suspect]
     Indication: PRURITUS
     Route: 065

REACTIONS (3)
  - DRUG INTERACTION [None]
  - HEPATOTOXICITY [None]
  - RHABDOMYOLYSIS [None]
